FAERS Safety Report 18463879 (Version 1)
Quarter: 2020Q4

REPORT INFORMATION
  Report Type: Spontaneous
  Country: US (occurrence: US)
  Receive Date: 20201104
  Receipt Date: 20201104
  Transmission Date: 20210114
  Serious: No
  Sender: FDA-Public Use
  Company Number: US-ASTRAZENECA-2020SF31660

PATIENT
  Sex: Female

DRUGS (1)
  1. BYDUREON [Suspect]
     Active Substance: EXENATIDE
     Dosage: WEEKLY
     Route: 065

REACTIONS (4)
  - Drug ineffective [Unknown]
  - Device issue [Unknown]
  - Device leakage [Unknown]
  - Impaired gastric emptying [Unknown]
